FAERS Safety Report 12936340 (Version 1)
Quarter: 2016Q4

REPORT INFORMATION
  Report Type: Spontaneous
  Country: US (occurrence: US)
  Receive Date: 20161113
  Receipt Date: 20161113
  Transmission Date: 20170207
  Serious: No
  Sender: FDA-Public Use
  Company Number: None

PATIENT
  Age: 59 Year
  Sex: Female
  Weight: 92.7 kg

DRUGS (14)
  1. MYLAN LIDOCAINE PATCHES 5% MYLAN [Suspect]
     Active Substance: LIDOCAINE
     Indication: RHEUMATOID ARTHRITIS
     Dosage: ?          QUANTITY:2 PATCH(ES);OTHER FREQUENCY:EVERY OTHER DAY;?
     Route: 062
     Dates: start: 20161112, end: 20161113
  2. XANAX [Concomitant]
     Active Substance: ALPRAZOLAM
  3. CLONEZAPAM [Concomitant]
  4. OMNEPRAZOLE [Concomitant]
  5. KLERK-CON [Concomitant]
  6. LORTAB [Concomitant]
     Active Substance: ACETAMINOPHEN\HYDROCODONE BITARTRATE
  7. SYNTHROID [Concomitant]
     Active Substance: LEVOTHYROXINE SODIUM
  8. ZOLOFT [Concomitant]
     Active Substance: SERTRALINE HYDROCHLORIDE
  9. AMLODIPINE [Concomitant]
     Active Substance: AMLODIPINE BESYLATE
  10. CLONIDINE. [Concomitant]
     Active Substance: CLONIDINE
  11. BENICAR [Concomitant]
     Active Substance: OLMESARTAN MEDOXOMIL
  12. BYSTOLIC [Concomitant]
     Active Substance: NEBIVOLOL HYDROCHLORIDE
  13. SUFLFASALADINE [Concomitant]
  14. WHEELCHAIR [Concomitant]
     Active Substance: DEVICE

REACTIONS (6)
  - Product substitution issue [None]
  - Application site irritation [None]
  - Wrong technique in product usage process [None]
  - Drug ineffective [None]
  - Product adhesion issue [None]
  - Device difficult to use [None]

NARRATIVE: CASE EVENT DATE: 20161112
